FAERS Safety Report 6413811-8 (Version None)
Quarter: 2009Q4

REPORT INFORMATION
  Report Type: 
  Country: None (occurrence: None)
  Receive Date: 20091026
  Receipt Date: 20091016
  Transmission Date: 20100525
  Serious: Yes (Hospitalization)
  Sender: FDA-Public Use
  Company Number: B0599345A

PATIENT
  Sex: Male

DRUGS (1)
  1. ALLI [Suspect]
     Dosage: 180MG PER DAY
     Dates: start: 20090706, end: 20090803

REACTIONS (1)
  - PANCREATITIS ACUTE [None]
